FAERS Safety Report 6071735-2 (Version None)
Quarter: 2009Q1

REPORT INFORMATION
  Report Type: 
  Country: None (occurrence: None)
  Receive Date: 20090209
  Receipt Date: 20090209
  Transmission Date: 20090719
  Serious: Yes (Death, Hospitalization)
  Sender: FDA-Public Use
  Company Number: None

PATIENT
  Age: 67 Year
  Sex: Male

DRUGS (2)
  1. AMIODARONE HCL [Suspect]
     Indication: ATRIAL FIBRILLATION
     Dosage: 250MG IV 1DAY 12/23/01 IV 100MG IV 2DAYS IV DEC23 2001 IN HOSPITAL (AFTER 21ST) OR) DEC 24
     Route: 042
     Dates: start: 20011223
  2. AMIODARONE HCL [Suspect]
     Indication: ATRIAL FIBRILLATION
     Dosage: 250MG IV 1DAY 12/23/01 IV 100MG IV 2DAYS IV DEC23 2001 IN HOSPITAL (AFTER 21ST) OR) DEC 24
     Route: 042
     Dates: start: 20011224

REACTIONS (5)
  - CHEST DISCOMFORT [None]
  - DYSPNOEA [None]
  - FATIGUE [None]
  - PULMONARY FIBROSIS [None]
  - THERAPEUTIC AGENT TOXICITY [None]
